FAERS Safety Report 6507634-9 (Version None)
Quarter: 2009Q4

REPORT INFORMATION
  Report Type: 
  Country: None (occurrence: None)
  Receive Date: 20091221
  Receipt Date: 20091016
  Transmission Date: 20100525
  Serious: No
  Sender: FDA-Public Use
  Company Number: US-BRISTOL-MYERS SQUIBB COMPANY-14822084

PATIENT
  Age: 65 Year
  Sex: Female

DRUGS (6)
  1. PRAVACHOL [Suspect]
     Indication: BLOOD TRIGLYCERIDES INCREASED
     Dosage: TAB
     Dates: start: 20090828, end: 20090910
  2. PRAVACHOL [Suspect]
     Indication: LOW DENSITY LIPOPROTEIN INCREASED
     Dosage: TAB
     Dates: start: 20090828, end: 20090910
  3. NIASPAN [Suspect]
     Indication: BLOOD TRIGLYCERIDES INCREASED
     Dosage: TAKES ON WEEKDAYS ONLY 500MG TABS EXTENDED RELEASE
     Route: 065
     Dates: start: 20090828
  4. NIASPAN [Suspect]
     Indication: LOW DENSITY LIPOPROTEIN INCREASED
     Dosage: TAKES ON WEEKDAYS ONLY 500MG TABS EXTENDED RELEASE
     Route: 065
     Dates: start: 20090828
  5. DOXYCYCLINE [Concomitant]
     Indication: ARTHROPOD BITE
     Dates: start: 20090909
  6. ACETYLSALICYLIC ACID [Concomitant]
     Dosage: TABS, INDICATION-TAKES WITH NIASPAN
     Dates: start: 20090828

REACTIONS (4)
  - ARTHROPOD BITE [None]
  - ASTHENIA [None]
  - FLUSHING [None]
  - MYALGIA [None]
